FAERS Safety Report 4977536-8 (Version None)
Quarter: 2006Q2

REPORT INFORMATION
  Report Type: 
  Country: None (occurrence: None)
  Receive Date: 20060414
  Receipt Date: 20060404
  Transmission Date: 20061013
  Serious: Yes (Disabling)
  Sender: FDA-Public Use
  Company Number: 2006-04-0125

PATIENT
  Age: 56 Year
  Sex: Male
  Weight: 76 kg

DRUGS (3)
  1. REBETOL [Suspect]
     Indication: HEPATIC CIRRHOSIS
     Dosage: 800 MG ORAL
     Route: 048
     Dates: start: 20050902
  2. VIRAFERONPEG [Suspect]
     Indication: HEPATIC CIRRHOSIS
     Dosage: SUBCUTANEOS
     Route: 058
     Dates: start: 20050902
  3. AVLOCARDYL [Concomitant]

REACTIONS (3)
  - HEADACHE [None]
  - PRURITUS [None]
  - TINNITUS [None]
